FAERS Safety Report 4867371-3 (Version None)
Quarter: 2005Q4

REPORT INFORMATION
  Report Type: 
  Country: None (occurrence: None)
  Receive Date: 20051223
  Receipt Date: 20051223
  Transmission Date: 20060501
  Serious: Yes (Hospitalization)
  Sender: FDA-Public Use
  Company Number: None

PATIENT
  Age: 20 Year
  Sex: Male
  Weight: 77.4 kg

DRUGS (1)
  1. PHENYTOIN SODIUM  100MG CAPSULES [Suspect]
     Indication: CONVULSION
     Dosage: 200MG ORALLY BID
     Route: 048
     Dates: start: 20051212, end: 20051215

REACTIONS (5)
  - BLOOD CREATINE PHOSPHOKINASE INCREASED [None]
  - BLOOD CREATININE INCREASED [None]
  - ELECTROCARDIOGRAM ABNORMAL [None]
  - MICROCYTIC ANAEMIA [None]
  - RHABDOMYOLYSIS [None]
